FAERS Safety Report 10273534 (Version 1)
Quarter: 2014Q2

REPORT INFORMATION
  Report Type: Spontaneous
  Country: FR (occurrence: None)
  Receive Date: 20140630
  Receipt Date: 20140630
  Transmission Date: 20141212
  Serious: Yes (Hospitalization)
  Sender: FDA-Public Use
  Company Number: FK201402501

PATIENT
  Age: 81 Year
  Sex: Female

DRUGS (13)
  1. PIPERACILLIN/TAZOBACTAM KABI [Suspect]
     Indication: COLITIS ISCHAEMIC
     Route: 042
     Dates: start: 20140523, end: 20140602
  2. METRONIDAZOLE [Suspect]
     Indication: COLITIS ISCHAEMIC
     Route: 042
     Dates: start: 20140520, end: 20140602
  3. VANCOMYCINE SANDOZ [Suspect]
     Indication: COLITIS ISCHAEMIC
     Route: 042
     Dates: start: 20140528, end: 20140602
  4. OFLOXACINE [Suspect]
     Indication: COLITIS ISCHAEMIC
     Route: 042
     Dates: start: 20140520
  5. SPECIAFOLDINE (FOLIC ACID) [Concomitant]
  6. KARDEGIC (ACETYLSALICYLATE LYSINE) [Concomitant]
  7. TAHOR (ATORVASTATIN CALCIUM) [Concomitant]
  8. LASILIX (FUROSEMIDE) [Concomitant]
  9. LEVOTHYROX (LEVOTHYROXINE SODIUM) [Concomitant]
  10. DIFFU K (POTASSIUM CHLORIDE) [Concomitant]
  11. LYRICA (PREGABALIN) [Concomitant]
  12. ODRIK (TRANDOLAPRIL) [Concomitant]
  13. BISO CE (BISOPROLOL FUMARATE) [Concomitant]

REACTIONS (2)
  - Eosinophilia [None]
  - Renal failure acute [None]
